FAERS Safety Report 13587980 (Version 4)
Quarter: 2017Q3

REPORT INFORMATION
  Report Type: Report from Study
  Country: FR (occurrence: FR)
  Receive Date: 20170527
  Receipt Date: 20170927
  Transmission Date: 20171127
  Serious: Yes (Other)
  Sender: FDA-Public Use
  Company Number: FR-BAXALTA-2017BLT004757

PATIENT
  Age: 12 Year
  Sex: Female
  Weight: 31 kg

DRUGS (19)
  1. CYCLOPHOSPHAMIDE. [Suspect]
     Active Substance: CYCLOPHOSPHAMIDE
     Indication: ACUTE LYMPHOCYTIC LEUKAEMIA
     Dosage: 1170 MG, UNK
     Route: 042
     Dates: start: 20170206, end: 20170206
  2. VINCRISTINE [Suspect]
     Active Substance: VINCRISTINE
     Dosage: 1.7 MG, UNK
     Dates: start: 20170227, end: 20170227
  3. BACTRIM [Concomitant]
     Active Substance: SULFAMETHOXAZOLE\TRIMETHOPRIM
     Indication: PRODUCT USED FOR UNKNOWN INDICATION
     Route: 065
  4. PEGASPARGASE [Suspect]
     Active Substance: PEGASPARGASE
     Indication: ACUTE LYMPHOCYTIC LEUKAEMIA
     Dosage: 2925 IU, UNK
     Route: 042
     Dates: start: 20170220, end: 20170220
  5. 6-MERCAPTOPURINE MONOHYDRATE [Suspect]
     Active Substance: MERCAPTOPURINE
     Dosage: 71 MG, UNK
     Route: 048
     Dates: start: 20170103, end: 20170116
  6. HYDROCORTISONE. [Suspect]
     Active Substance: HYDROCORTISONE
     Indication: ACUTE LYMPHOCYTIC LEUKAEMIA
     Dosage: 15 MG, UNK
     Route: 037
     Dates: start: 20170105, end: 20170208
  7. DEBRIDAT                           /00465201/ [Concomitant]
     Active Substance: TRIMEBUTINE MALEATE
     Indication: PRODUCT USED FOR UNKNOWN INDICATION
     Route: 065
  8. CYTARABINE. [Suspect]
     Active Substance: CYTARABINE
     Dosage: 30 MG, UNK
     Route: 037
     Dates: start: 20170105, end: 20170208
  9. METHOTREXATE. [Suspect]
     Active Substance: METHOTREXATE
     Indication: ACUTE LYMPHOCYTIC LEUKAEMIA
     Dosage: 15 MG, UNK
     Route: 037
     Dates: start: 20170105, end: 20170208
  10. CYCLOPHOSPHAMIDE. [Suspect]
     Active Substance: CYCLOPHOSPHAMIDE
     Dosage: 1180 MG, UNK
     Route: 042
     Dates: start: 20170103, end: 20170103
  11. CYTARABINE. [Suspect]
     Active Substance: CYTARABINE
     Dosage: 89 MG, UNK
     Route: 042
     Dates: start: 20170113, end: 20170115
  12. 6-MERCAPTOPURINE MONOHYDRATE [Suspect]
     Active Substance: MERCAPTOPURINE
     Indication: ACUTE LYMPHOCYTIC LEUKAEMIA
     Dosage: 70 MG, UNK
     Route: 048
     Dates: start: 20170206, end: 20170219
  13. VINCRISTINE [Suspect]
     Active Substance: VINCRISTINE
     Dosage: 1.8 MG, UNK
     Dates: start: 20170117, end: 20170117
  14. VINCRISTINE [Suspect]
     Active Substance: VINCRISTINE
     Dosage: 1.8 MG, UNK
     Dates: start: 20170124, end: 20170124
  15. CYTARABINE. [Suspect]
     Active Substance: CYTARABINE
     Dosage: 89 MG, UNK
     Route: 042
     Dates: start: 20170105, end: 20170107
  16. ZOVIRAX [Concomitant]
     Active Substance: ACYCLOVIR
     Indication: PRODUCT USED FOR UNKNOWN INDICATION
     Route: 065
  17. PEGASPARGASE [Suspect]
     Active Substance: PEGASPARGASE
     Dosage: 2950 IU, UNK
     Route: 042
     Dates: start: 20170117, end: 20170117
  18. VINCRISTINE [Suspect]
     Active Substance: VINCRISTINE
     Indication: ACUTE LYMPHOCYTIC LEUKAEMIA
     Dosage: 1.7 MG, UNK
     Dates: start: 20170220, end: 20170220
  19. CYTARABINE. [Suspect]
     Active Substance: CYTARABINE
     Indication: ACUTE LYMPHOCYTIC LEUKAEMIA
     Dosage: 88 MG, UNK
     Route: 042
     Dates: start: 20170208, end: 20170210

REACTIONS (1)
  - Hyperammonaemia [Recovering/Resolving]

NARRATIVE: CASE EVENT DATE: 20170223
